FAERS Safety Report 18106889 (Version 3)
Quarter: 2020Q3

REPORT INFORMATION
  Report Type: Report from Study
  Country: GB (occurrence: GB)
  Receive Date: 20200804
  Receipt Date: 20200817
  Transmission Date: 20201103
  Serious: Yes (Death)
  Sender: FDA-Public Use
  Company Number: GB-PFIZER INC-2020193110

PATIENT

DRUGS (3)
  1. GEMCITABINE HYDROCHLORIDE. [Suspect]
     Active Substance: GEMCITABINE HYDROCHLORIDE
     Indication: TRANSITIONAL CELL CANCER OF THE RENAL PELVIS AND URETER
     Dosage: 1000 MG/M2, CYCLIC (30 MINS, DAYS 1 AND 8)
     Route: 042
     Dates: start: 20130108, end: 20130319
  2. VANDETANIB. [Suspect]
     Active Substance: VANDETANIB
     Indication: TRANSITIONAL CELL CANCER OF THE RENAL PELVIS AND URETER
     Dosage: 100 MG, ONCE DAILY, CYCLIC
     Route: 048
     Dates: start: 20130108, end: 20130108
  3. CARBOPLATIN. [Concomitant]
     Active Substance: CARBOPLATIN
     Indication: TRANSITIONAL CELL CANCER OF THE RENAL PELVIS AND URETER
     Dosage: UNK, CYCLIC (AUC = 4.5, SIX 21?DAY CYCLES OVER 30?60 MINS ON DAY 1)
     Route: 042
     Dates: start: 20130108, end: 20130312

REACTIONS (4)
  - Myocardial infarction [Fatal]
  - Myocardial ischaemia [Fatal]
  - Arrhythmia [Fatal]
  - Electrocardiogram QT prolonged [Fatal]

NARRATIVE: CASE EVENT DATE: 20130331
